FAERS Safety Report 10133248 (Version 2)
Quarter: 2014Q2

REPORT INFORMATION
  Report Type: Report from Study
  Country: DE (occurrence: DE)
  Receive Date: 20140428
  Receipt Date: 20140527
  Transmission Date: 20141212
  Serious: Yes (Hospitalization, Other)
  Sender: FDA-Public Use
  Company Number: DE-TEVA-477435GER

PATIENT
  Age: 44 Year
  Sex: Male
  Weight: 83 kg

DRUGS (5)
  1. COPAXONE [Suspect]
     Indication: MULTIPLE SCLEROSIS
     Dosage: 20 MILLIGRAM DAILY;
     Route: 058
     Dates: start: 20120101
  2. COPAXONE [Suspect]
     Dosage: 20 MILLIGRAM DAILY;
     Route: 058
     Dates: start: 2004, end: 2007
  3. BACLOFEN [Concomitant]
     Indication: MUSCLE SPASTICITY
     Dosage: 55 MILLIGRAM DAILY; 2-1.5-2 UNIT DOSES PER DAY
     Route: 048
     Dates: start: 2007
  4. MIRTAZAPINE [Concomitant]
     Indication: INSOMNIA
     Dosage: 30 MILLIGRAM DAILY;
     Route: 048
     Dates: start: 2011
  5. MIRTAZAPINE [Concomitant]
     Indication: DEPRESSION

REACTIONS (9)
  - Transient ischaemic attack [Recovered/Resolved]
  - Multiple sclerosis [Recovered/Resolved]
  - Eye movement disorder [Recovered/Resolved]
  - Fall [Recovered/Resolved]
  - Dysstasia [Recovered/Resolved]
  - Diplopia [Recovered/Resolved]
  - Dizziness [Recovered/Resolved]
  - Balance disorder [Recovered/Resolved]
  - Nuclear magnetic resonance imaging abnormal [Unknown]
